FAERS Safety Report 18546777 (Version 2)
Quarter: 2020Q4

REPORT INFORMATION
  Report Type: Spontaneous
  Country: JP (occurrence: JP)
  Receive Date: 20201125
  Receipt Date: 20201208
  Transmission Date: 20210114
  Serious: Yes (Other)
  Sender: FDA-Public Use
  Company Number: JP-ASTRAZENECA-2020SF53016

PATIENT
  Age: 74 Year
  Sex: Female

DRUGS (3)
  1. TAGRISSO [Suspect]
     Active Substance: OSIMERTINIB
     Indication: NON-SMALL CELL LUNG CANCER
     Route: 048
  2. TAGRISSO [Interacting]
     Active Substance: OSIMERTINIB
     Indication: NON-SMALL CELL LUNG CANCER
     Dosage: ADMINISTRATION VIA TUBE BY THE SIMPLE SUSPENSION
     Route: 048
  3. FOSPHENYTOIN [Interacting]
     Active Substance: FOSPHENYTOIN
     Indication: SEIZURE
     Route: 065

REACTIONS (2)
  - Off label use [Unknown]
  - Drug interaction [Recovered/Resolved]
